FAERS Safety Report 5297394-4 (Version None)
Quarter: 2007Q2

REPORT INFORMATION
  Report Type: 
  Country: None (occurrence: None)
  Receive Date: 20070410
  Receipt Date: 20070410
  Transmission Date: 20071010
  Serious: No
  Sender: FDA-Public Use
  Company Number: None

PATIENT

DRUGS (2)
  1. ZYRTEC [Suspect]
     Dosage: SYRUP
  2. ZANTAC [Suspect]
     Dosage: SYRUP

REACTIONS (10)
  - ABDOMINAL PAIN [None]
  - ACCOMMODATION DISORDER [None]
  - CRYING [None]
  - DRUG DISPENSING ERROR [None]
  - DRY MOUTH [None]
  - INCORRECT DOSE ADMINISTERED [None]
  - MEDICATION ERROR [None]
  - MYDRIASIS [None]
  - VOMITING [None]
  - WRONG DRUG ADMINISTERED [None]
